FAERS Safety Report 19378631 (Version 1)
Quarter: 2021Q2

REPORT INFORMATION
  Report Type: Spontaneous
  Country: TR (occurrence: TR)
  Receive Date: 20210606
  Receipt Date: 20210606
  Transmission Date: 20210717
  Serious: Yes (Life-Threatening)
  Sender: FDA-Public Use
  Company Number: NVSC2021TR124552

PATIENT
  Age: 5 Year
  Sex: Male

DRUGS (1)
  1. AKLOVIR [ACICLOVIR] [Suspect]
     Active Substance: ACYCLOVIR
     Indication: ACUTE LYMPHOCYTIC LEUKAEMIA
     Dosage: 5 ML, TID
     Route: 065
     Dates: start: 20200608

REACTIONS (4)
  - Unevaluable event [Unknown]
  - Wrong technique in product usage process [Unknown]
  - Product outer packaging issue [Unknown]
  - Product use in unapproved indication [Unknown]
